FAERS Safety Report 4264643-0 (Version None)
Quarter: 2004Q1

REPORT INFORMATION
  Report Type: 
  Country: None (occurrence: None)
  Receive Date: 20040105
  Receipt Date: 20031222
  Transmission Date: 20041129
  Serious: Yes (Disabling)
  Sender: FDA-Public Use
  Company Number: 200313800EU

PATIENT
  Age: 34 Year
  Sex: Female

DRUGS (1)
  1. LANTUS [Suspect]
     Dates: start: 20030501, end: 20031201

REACTIONS (1)
  - BACK PAIN [None]
